FAERS Safety Report 10947278 (Version 1)
Quarter: 2015Q1

REPORT INFORMATION
  Report Type: Spontaneous
  Country: FR (occurrence: FR)
  Receive Date: 20150323
  Receipt Date: 20150323
  Transmission Date: 20150721
  Serious: Yes (Hospitalization, Other)
  Sender: FDA-Public Use
  Company Number: FR-PFIZER INC-2015095013

PATIENT
  Age: 57 Year
  Sex: Male

DRUGS (11)
  1. TAHOR [Suspect]
     Active Substance: ATORVASTATIN CALCIUM
     Dosage: UNK
     Route: 048
     Dates: start: 201402, end: 201405
  2. STAGID [Concomitant]
     Active Substance: METFORMIN PAMOATE
     Dosage: UNK
     Dates: start: 201405
  3. NOVORAPID [Concomitant]
     Active Substance: INSULIN ASPART
  4. TAHOR [Suspect]
     Active Substance: ATORVASTATIN CALCIUM
     Dosage: UNK
     Route: 048
     Dates: end: 201311
  5. LANTUS [Concomitant]
     Active Substance: INSULIN GLARGINE
  6. TEMESTA [Concomitant]
     Active Substance: LORAZEPAM
  7. STAGID [Concomitant]
     Active Substance: METFORMIN PAMOATE
     Dosage: UNK
     Dates: end: 201404
  8. REMICADE [Suspect]
     Active Substance: INFLIXIMAB
     Indication: CROHN^S DISEASE
     Dosage: 5 MG/KG, CYCLIC (3 CYCLES IN TOTAL)
     Dates: start: 20140214, end: 20140327
  9. INEXIUM /01479302/ [Suspect]
     Active Substance: ESOMEPRAZOLE MAGNESIUM
     Dosage: UNK
     Route: 048
     Dates: end: 201405
  10. SERC [Concomitant]
     Active Substance: BETAHISTINE HYDROCHLORIDE
  11. FLECAINE [Concomitant]
     Active Substance: FLECAINIDE

REACTIONS (1)
  - Autoimmune hepatitis [Recovering/Resolving]

NARRATIVE: CASE EVENT DATE: 201405
